FAERS Safety Report 25097878 (Version 1)
Quarter: 2025Q1

REPORT INFORMATION
  Report Type: Spontaneous
  Country: FR (occurrence: FR)
  Receive Date: 20250320
  Receipt Date: 20250320
  Transmission Date: 20250408
  Serious: Yes (Hospitalization, Other)
  Sender: ALKEM
  Company Number: FR-ALKEM LABORATORIES LIMITED-FR-ALKEM-2025-02449

PATIENT
  Age: 24 Year
  Sex: Male

DRUGS (2)
  1. PREGABALIN [Suspect]
     Active Substance: PREGABALIN
     Indication: Product used for unknown indication
     Dosage: UNK, QD (PER DAY), (BETWEEN 1,200 AND 2,000 MILLIGRAM)
     Route: 065
  2. PREGABALIN [Suspect]
     Active Substance: PREGABALIN
     Dosage: 1500 MILLIGRAM, QD (PER DAY)
     Route: 065

REACTIONS (6)
  - Toxicity to various agents [Unknown]
  - Drug use disorder [Unknown]
  - Drug dependence [Unknown]
  - Emotional distress [Unknown]
  - Withdrawal syndrome [Recovered/Resolved]
  - Prescription drug used without a prescription [Unknown]
